FAERS Safety Report 7808977-9 (Version None)
Quarter: 2011Q4

REPORT INFORMATION
  Report Type: 
  Country: None (occurrence: None)
  Receive Date: 20111012
  Receipt Date: 20111010
  Transmission Date: 20120403
  Serious: No
  Sender: FDA-Public Use
  Company Number: US-B.I. PHARMACEUTICALS,INC./RIDGEFIELD-2011-BP-23931BP

PATIENT
  Sex: Male

DRUGS (14)
  1. PREDNISONE [Concomitant]
     Indication: MULTIPLE MYELOMA
     Route: 048
  2. FISH OIL [Concomitant]
     Indication: SUPPLEMENTATION THERAPY
     Route: 048
  3. METOPROLOL TARTRATE [Concomitant]
     Indication: HYPERTENSION
     Route: 048
  4. DEXAMETHASONE [Concomitant]
     Indication: MULTIPLE MYELOMA
     Route: 048
  5. ACYCLOVIR [Concomitant]
     Indication: PROPHYLAXIS
     Route: 048
  6. NAPROXEN (ALEVE) [Concomitant]
     Indication: PAIN
     Route: 048
  7. LASIX [Concomitant]
     Indication: CARDIAC DISORDER
  8. PRADAXA [Suspect]
     Indication: ATRIAL FIBRILLATION
     Dosage: 300 MG
     Route: 048
     Dates: start: 20110919, end: 20111003
  9. SULFAMETHAZINE [Concomitant]
     Indication: MULTIPLE MYELOMA
     Route: 048
  10. POTASSIUM [Concomitant]
     Indication: SUPPLEMENTATION THERAPY
     Route: 048
  11. TYLENOL-500 [Concomitant]
     Indication: PAIN
     Route: 048
  12. PRILOSEC [Concomitant]
     Indication: ABDOMINAL PAIN UPPER
     Route: 048
  13. LASIX [Concomitant]
     Indication: SWELLING
     Route: 048
  14. IMODIUM [Concomitant]
     Indication: DIARRHOEA
     Route: 048

REACTIONS (3)
  - DYSPEPSIA [None]
  - ABDOMINAL PAIN UPPER [None]
  - OESOPHAGEAL PAIN [None]
